FAERS Safety Report 10169966 (Version 2)
Quarter: 2014Q3

REPORT INFORMATION
  Report Type: Spontaneous
  Country: JP (occurrence: JP)
  Receive Date: 20140513
  Receipt Date: 20140702
  Transmission Date: 20150326
  Serious: Yes (Death)
  Sender: FDA-Public Use
  Company Number: JP-BAYER-2014-069933

PATIENT
  Age: 77 Year
  Sex: Male
  Weight: 68.03 kg

DRUGS (17)
  1. LASIX [Concomitant]
     Active Substance: FUROSEMIDE
     Indication: POLYURIA
     Dosage: 20 MG, OM
     Route: 048
     Dates: start: 20140501
  2. GASMOTIN [Concomitant]
     Active Substance: MOSAPRIDE CITRATE
     Indication: PROPHYLAXIS
     Dosage: DAILY DOSE 15 MG
     Route: 048
     Dates: start: 20140501
  3. SIGMART [Concomitant]
     Active Substance: NICORANDIL
     Indication: ANGINA PECTORIS
     Dosage: DAILY DOSE 15 MG
     Route: 048
     Dates: start: 20140501
  4. TAKEPRON [Concomitant]
     Active Substance: LANSOPRAZOLE
     Indication: GASTRITIS PROPHYLAXIS
     Dosage: 30 MG, OM
     Route: 048
     Dates: start: 20140501
  5. HIRUDOID [Concomitant]
     Active Substance: GLYCOSAMINOGLYCANS
     Indication: DRUG TOXICITY PROPHYLAXIS
     Dosage: UNK
     Route: 061
     Dates: start: 20140501
  6. FARMORUBICIN [Concomitant]
     Active Substance: EPIRUBICIN HYDROCHLORIDE
     Dosage: DAILY DOSE 11.7 MG
     Dates: start: 20140409, end: 20140409
  7. LIVACT [Concomitant]
     Indication: PROPHYLAXIS
     Dosage: DAILY DOSE 12.45 G
     Route: 048
     Dates: start: 20140501
  8. MAGNESIUM OXIDE HEAVY [Concomitant]
     Active Substance: MAGNESIUM OXIDE
     Indication: CONSTIPATION PROPHYLAXIS
     Dosage: DAILY DOSE .99 G
     Route: 048
     Dates: start: 20140501
  9. ANTEBATE [Concomitant]
     Active Substance: BETAMETHASONE DIPROPIONATE
     Indication: DRUG TOXICITY PROPHYLAXIS
     Dosage: UNK
     Route: 061
     Dates: start: 20140501
  10. NEXAVAR [Suspect]
     Active Substance: SORAFENIB
     Indication: HEPATOCELLULAR CARCINOMA
     Dosage: 200 MG, BID
     Route: 048
     Dates: start: 20140501, end: 20140507
  11. AMLODIPINE BESILATE [Concomitant]
     Active Substance: AMLODIPINE BESYLATE
     Indication: HYPERTENSION
     Dosage: 5 MG, OM
     Route: 048
     Dates: start: 20140501
  12. FARMORUBICIN [Concomitant]
     Active Substance: EPIRUBICIN HYDROCHLORIDE
     Dosage: DAILY DOSE 24 MG
     Dates: start: 201401
  13. MALFA [Concomitant]
     Indication: GASTRITIS PROPHYLAXIS
     Dosage: DAILY DOSE 80 ML
     Route: 048
     Dates: start: 20140501
  14. AMARYL [Concomitant]
     Active Substance: GLIMEPIRIDE
     Indication: DIABETES MELLITUS
     Dosage: DAILY DOSE 1.5 MG
     Route: 048
     Dates: start: 20140501
  15. VILDAGLIPTIN [Concomitant]
     Active Substance: VILDAGLIPTIN
     Indication: DIABETES MELLITUS
     Dosage: DAILY DOSE 100 MG
     Route: 048
     Dates: start: 20140501
  16. TENORMIN [Concomitant]
     Active Substance: ATENOLOL
     Indication: HYPERTENSION
     Dosage: 25 MG, QD
     Route: 048
     Dates: start: 20140501
  17. ALDACTONE [Concomitant]
     Active Substance: SPIRONOLACTONE
     Indication: HYPERTENSION
     Dosage: 50 MG, OM
     Route: 048
     Dates: start: 20140501

REACTIONS (1)
  - Oesophageal varices haemorrhage [Fatal]

NARRATIVE: CASE EVENT DATE: 20140507
